FAERS Safety Report 4606275-8 (Version None)
Quarter: 2005Q1

REPORT INFORMATION
  Report Type: 
  Country: None (occurrence: None)
  Receive Date: 20050311
  Receipt Date: 20050303
  Transmission Date: 20050727
  Serious: Yes (Congenital Anomaly, Other)
  Sender: FDA-Public Use
  Company Number: US-ABBOTT-05P-163-0293174-00

PATIENT
  Sex: Female

DRUGS (1)
  1. DEPAKOTE [Suspect]
     Indication: DRUG EXPOSURE DURING PREGNANCY

REACTIONS (2)
  - MENTAL RETARDATION SEVERITY UNSPECIFIED [None]
  - PHYSICAL DISABILITY [None]
